FAERS Safety Report 11728567 (Version 2)
Quarter: 2015Q4

REPORT INFORMATION
  Report Type: Spontaneous
  Country: GB (occurrence: GB)
  Receive Date: 20151112
  Receipt Date: 20151118
  Transmission Date: 20160304
  Serious: Yes (Life-Threatening, Hospitalization)
  Sender: FDA-Public Use
  Company Number: GB-TEVA-606574ACC

PATIENT
  Age: 7 Year
  Sex: Female
  Weight: 24.2 kg

DRUGS (7)
  1. HUMIRA [Suspect]
     Active Substance: ADALIMUMAB
     Indication: UVEITIS
     Route: 058
     Dates: start: 20150424, end: 20151014
  2. AMOXICILLIN. [Concomitant]
     Active Substance: AMOXICILLIN
  3. MAXIDEX [Concomitant]
     Active Substance: DEXAMETHASONE
  4. TRUSOPT [Concomitant]
     Active Substance: DORZOLAMIDE HYDROCHLORIDE
  5. MYCOPHENOLATE MOFETIL. [Suspect]
     Active Substance: MYCOPHENOLATE MOFETIL
     Dosage: 1000 MILLIGRAM DAILY;
     Route: 048
     Dates: start: 20150424, end: 20151014
  6. MYCOPHENOLATE MOFETIL. [Suspect]
     Active Substance: MYCOPHENOLATE MOFETIL
     Indication: UVEITIS
     Dosage: 500 MILLIGRAM DAILY;
     Route: 048
     Dates: start: 20141219, end: 20150423
  7. METHOTREXATE [Suspect]
     Active Substance: METHOTREXATE
     Indication: UVEITIS
     Route: 058
     Dates: start: 20140627, end: 20150801

REACTIONS (2)
  - Alanine aminotransferase increased [Recovered/Resolved]
  - Acute lymphocytic leukaemia [Not Recovered/Not Resolved]

NARRATIVE: CASE EVENT DATE: 201504
